FAERS Safety Report 4521965-3 (Version None)
Quarter: 2004Q4

REPORT INFORMATION
  Report Type: 
  Country: None (occurrence: None)
  Receive Date: 20041206
  Receipt Date: 20041122
  Transmission Date: 20050328
  Serious: Yes (Other)
  Sender: FDA-Public Use
  Company Number: 2004093082

PATIENT
  Sex: Male

DRUGS (2)
  1. BEXTRA [Suspect]
     Indication: PAIN
     Dosage: ORAL
     Route: 048
     Dates: start: 20040501, end: 20040101
  2. HYDROCHLOROTHIAZIDE [Suspect]
     Indication: HYPERTENSION

REACTIONS (14)
  - BLISTER [None]
  - DRUG ERUPTION [None]
  - EMOTIONAL DISORDER [None]
  - EOSINOPHILIA [None]
  - ERYTHEMA [None]
  - HOT FLUSH [None]
  - PHOTOSENSITIVITY REACTION [None]
  - PRURITUS [None]
  - RASH SCALY [None]
  - SKIN DESQUAMATION [None]
  - SKIN LESION [None]
  - SKIN OEDEMA [None]
  - SUICIDAL IDEATION [None]
  - WEIGHT DECREASED [None]
